FAERS Safety Report 21506186 (Version 2)
Quarter: 2022Q4

REPORT INFORMATION
  Report Type: Spontaneous
  Country: TG (occurrence: TG)
  Receive Date: 20221026
  Receipt Date: 20221103
  Transmission Date: 20230112
  Serious: Yes (Death)
  Sender: FDA-Public Use
  Company Number: TG-NOVARTISPH-NVSC2022TG240226

PATIENT
  Sex: Female

DRUGS (1)
  1. GLIVEC [Suspect]
     Active Substance: IMATINIB MESYLATE
     Indication: Dermatofibrosarcoma protuberans
     Dosage: 100 MG, 8QD (100MGX 8 PER DAY)
     Route: 065

REACTIONS (1)
  - Road traffic accident [Fatal]
